FAERS Safety Report 18568443 (Version 3)
Quarter: 2021Q3

REPORT INFORMATION
  Report Type: Report from Study
  Country: CA (occurrence: CA)
  Receive Date: 20201202
  Receipt Date: 20210803
  Transmission Date: 20211014
  Serious: Yes (Other)
  Sender: FDA-Public Use
  Company Number: CA-JNJFOC-20201149408

PATIENT
  Age: 32 Year
  Sex: Female

DRUGS (2)
  1. REMICADE [Suspect]
     Active Substance: INFLIXIMAB
     Indication: CROHN^S DISEASE
     Route: 042
  2. PREDNISONE. [Concomitant]
     Active Substance: PREDNISONE
     Indication: PRODUCT USED FOR UNKNOWN INDICATION
     Dosage: 5MG, 4 TABLETS FOR 7 DAYS, 3 TABLETS FOR 7 DAYS, 2 TABLETS FOR 7 DAYS, THEN 1 TABLET FOR 7 DAYS.
     Route: 048
     Dates: start: 20201121

REACTIONS (4)
  - Crohn^s disease [Unknown]
  - Therapeutic response shortened [Unknown]
  - Blood iron decreased [Unknown]
  - Hysterectomy [Unknown]

NARRATIVE: CASE EVENT DATE: 20200921
